FAERS Safety Report 9550743 (Version 2)
Quarter: 2014Q2

REPORT INFORMATION
  Report Type: Spontaneous
  Country: US (occurrence: US)
  Receive Date: 20130924
  Receipt Date: 20140402
  Transmission Date: 20141212
  Serious: No
  Sender: FDA-Public Use
  Company Number: US-SANOFI-AVENTIS-2013SA022545

PATIENT
  Age: 53 Year
  Sex: Female

DRUGS (1)
  1. AUBAGIO [Suspect]
     Indication: MULTIPLE SCLEROSIS
     Route: 048
     Dates: start: 20120107

REACTIONS (7)
  - Muscle spasms [Unknown]
  - Blood urea increased [Unknown]
  - Asthenia [Not Recovered/Not Resolved]
  - Alopecia [Recovered/Resolved]
  - Blood creatinine increased [Unknown]
  - Liver function test abnormal [Unknown]
  - Drug ineffective [Unknown]
